FAERS Safety Report 9033341 (Version 5)
Quarter: 2017Q2

REPORT INFORMATION
  Report Type: Spontaneous
  Country: US (occurrence: US)
  Receive Date: 20130128
  Receipt Date: 20170426
  Transmission Date: 20170830
  Serious: No
  Sender: FDA-Public Use
  Company Number: US-009507513-1301USA011208

PATIENT
  Sex: Male
  Weight: 96.6 kg

DRUGS (4)
  1. FINASTERIDE. [Suspect]
     Active Substance: FINASTERIDE
     Dosage: 1 MG, QD
     Route: 048
     Dates: start: 20130917, end: 201410
  2. PROPECIA [Suspect]
     Active Substance: FINASTERIDE
     Indication: ANDROGENETIC ALOPECIA
     Dosage: 1 MG, QD
     Route: 048
     Dates: start: 20020708
  3. FINASTERIDE. [Suspect]
     Active Substance: FINASTERIDE
     Indication: ALOPECIA
     Dosage: 5 MG, QD
     Route: 048
     Dates: start: 20100409
  4. PROPECIA [Suspect]
     Active Substance: FINASTERIDE
     Indication: ALOPECIA
     Dosage: UNK UNK, UNKNOWN
     Route: 048
     Dates: start: 200107

REACTIONS (23)
  - Erectile dysfunction [Unknown]
  - Semen volume decreased [Unknown]
  - Anxiety [Not Recovered/Not Resolved]
  - Drug administration error [Unknown]
  - Cognitive disorder [Not Recovered/Not Resolved]
  - Libido decreased [Unknown]
  - Road traffic accident [Unknown]
  - Melanocytic naevus [Unknown]
  - Dermal cyst [Unknown]
  - Tobacco abuse [Unknown]
  - Circadian rhythm sleep disorder [Not Recovered/Not Resolved]
  - Rhinitis allergic [Not Recovered/Not Resolved]
  - Hypertension [Not Recovered/Not Resolved]
  - Sleep disorder [Recovering/Resolving]
  - Back pain [Not Recovered/Not Resolved]
  - Sexual dysfunction [Not Recovered/Not Resolved]
  - Depression [Unknown]
  - Eczema [Recovering/Resolving]
  - Stress [Unknown]
  - Anger [Unknown]
  - Lethargy [Unknown]
  - Hyperlipidaemia [Not Recovered/Not Resolved]
  - Wisdom teeth removal [Unknown]

NARRATIVE: CASE EVENT DATE: 200109
